FAERS Safety Report 12153447 (Version 1)
Quarter: 2016Q1

REPORT INFORMATION
  Report Type: Spontaneous
  Country: SE (occurrence: SE)
  Receive Date: 20160306
  Receipt Date: 20160306
  Transmission Date: 20160526
  Serious: Yes (Other)
  Sender: FDA-Public Use
  Company Number: SE-ROCHE-1720069

PATIENT
  Age: 24 Year
  Sex: Female

DRUGS (43)
  1. CELLCEPT [Suspect]
     Active Substance: MYCOPHENOLATE MOFETIL\MYCOPHENOLATE MOFETIL HYDROCHLORIDE
     Indication: LIVER TRANSPLANT
     Dosage: TOTAL DAILY DOSE
     Route: 065
     Dates: start: 20121214
  2. TACROLIMUS. [Concomitant]
     Active Substance: TACROLIMUS
     Dosage: TOTAL DAILY DOSE
     Route: 065
     Dates: start: 20121117
  3. TACROLIMUS. [Concomitant]
     Active Substance: TACROLIMUS
     Dosage: TOTAL DAILY DOSE
     Route: 065
     Dates: start: 20140614
  4. TACROLIMUS. [Concomitant]
     Active Substance: TACROLIMUS
     Dosage: TOTAL DAILY DOSE
     Route: 065
     Dates: start: 20150320
  5. CELLCEPT [Suspect]
     Active Substance: MYCOPHENOLATE MOFETIL\MYCOPHENOLATE MOFETIL HYDROCHLORIDE
     Dosage: DAILY DOSE
     Route: 065
     Dates: start: 20151229
  6. TACROLIMUS. [Concomitant]
     Active Substance: TACROLIMUS
     Dosage: TOTAL DAILY DOSE
     Route: 065
     Dates: start: 20121121
  7. TACROLIMUS. [Concomitant]
     Active Substance: TACROLIMUS
     Dosage: TOTAL DAILY DOSE
     Route: 065
     Dates: start: 20151217
  8. TACROLIMUS. [Concomitant]
     Active Substance: TACROLIMUS
     Dosage: TOTAL DAILY DOSE
     Route: 065
     Dates: start: 20151225
  9. TACROLIMUS. [Concomitant]
     Active Substance: TACROLIMUS
     Dosage: TOTAL DAILY DOSE
     Route: 065
     Dates: start: 20160202
  10. TACROLIMUS. [Concomitant]
     Active Substance: TACROLIMUS
     Dosage: TOTAL DAILY DOSE
     Route: 065
     Dates: start: 20150219
  11. TACROLIMUS. [Concomitant]
     Active Substance: TACROLIMUS
     Dosage: TOTAL DAILY DOSE
     Route: 065
     Dates: start: 20150313
  12. TACROLIMUS. [Concomitant]
     Active Substance: TACROLIMUS
     Dosage: TOTAL DAILY DOSE
     Route: 065
     Dates: start: 20151004
  13. TACROLIMUS. [Concomitant]
     Active Substance: TACROLIMUS
     Dosage: TOTAL DAILY DOSE
     Route: 065
     Dates: start: 20160128
  14. TACROLIMUS. [Concomitant]
     Active Substance: TACROLIMUS
     Dosage: TOTAL DAILY DOSE
     Route: 065
     Dates: start: 20160129
  15. TACROLIMUS. [Concomitant]
     Active Substance: TACROLIMUS
     Dosage: TOTAL DAILY DOSE
     Route: 065
     Dates: start: 20160213
  16. TACROLIMUS. [Concomitant]
     Active Substance: TACROLIMUS
     Dosage: TOTAL DAILY DOSE
     Route: 065
     Dates: start: 20121116
  17. TACROLIMUS. [Concomitant]
     Active Substance: TACROLIMUS
     Dosage: TOTAL DAILY DOSE
     Route: 065
     Dates: start: 20151204
  18. TACROLIMUS. [Concomitant]
     Active Substance: TACROLIMUS
     Dosage: TOTAL DAILY DOSE
     Route: 065
     Dates: start: 20151226
  19. TACROLIMUS. [Concomitant]
     Active Substance: TACROLIMUS
     Dosage: TOTAL DAILY DOSE
     Route: 065
     Dates: start: 20151227
  20. TACROLIMUS. [Concomitant]
     Active Substance: TACROLIMUS
     Dosage: TOTAL DAILY DOSE
     Route: 065
     Dates: start: 20160210
  21. TACROLIMUS. [Concomitant]
     Active Substance: TACROLIMUS
     Dosage: TOTAL DAILY DOSE
     Route: 065
     Dates: start: 20160212
  22. TACROLIMUS. [Concomitant]
     Active Substance: TACROLIMUS
     Dosage: TOTAL DAILY DOSE
     Route: 065
     Dates: start: 20160214
  23. TACROLIMUS. [Concomitant]
     Active Substance: TACROLIMUS
     Dosage: TOTAL DAILY DOSE
     Route: 065
     Dates: start: 20150923
  24. TACROLIMUS. [Concomitant]
     Active Substance: TACROLIMUS
     Dosage: TOTAL DAILY DOSE
     Route: 065
     Dates: start: 20160112
  25. CELLCEPT [Suspect]
     Active Substance: MYCOPHENOLATE MOFETIL\MYCOPHENOLATE MOFETIL HYDROCHLORIDE
     Dosage: DAILY DOSE
     Route: 065
     Dates: start: 20140521
  26. CELLCEPT [Suspect]
     Active Substance: MYCOPHENOLATE MOFETIL\MYCOPHENOLATE MOFETIL HYDROCHLORIDE
     Dosage: DAILY DOSE
     Route: 065
     Dates: start: 20151228
  27. TACROLIMUS. [Concomitant]
     Active Substance: TACROLIMUS
     Dosage: TOTAL DAILY DOSE
     Route: 065
     Dates: start: 20141117
  28. TACROLIMUS. [Concomitant]
     Active Substance: TACROLIMUS
     Dosage: TOTAL DAILY DOSE
     Route: 065
     Dates: start: 20151229
  29. TACROLIMUS. [Concomitant]
     Active Substance: TACROLIMUS
     Dosage: TOTAL DAILY DOSE
     Route: 065
     Dates: start: 20151230
  30. TACROLIMUS. [Concomitant]
     Active Substance: TACROLIMUS
     Dosage: TOTAL DAILY DOSE
     Route: 065
     Dates: start: 20160107
  31. TACROLIMUS. [Concomitant]
     Active Substance: TACROLIMUS
     Dosage: TOTAL DAILY DOSE
     Route: 065
     Dates: start: 20160108
  32. CELLCEPT [Suspect]
     Active Substance: MYCOPHENOLATE MOFETIL\MYCOPHENOLATE MOFETIL HYDROCHLORIDE
     Dosage: DAILY DOSE
     Route: 065
     Dates: start: 20151220
  33. TACROLIMUS. [Concomitant]
     Active Substance: TACROLIMUS
     Indication: LIVER TRANSPLANT
     Dosage: TOTAL DAILY DOSE
     Route: 065
     Dates: start: 20090305
  34. TACROLIMUS. [Concomitant]
     Active Substance: TACROLIMUS
     Dosage: TOTAL DAILY DOSE
     Route: 065
     Dates: start: 20121120
  35. TACROLIMUS. [Concomitant]
     Active Substance: TACROLIMUS
     Dosage: TOTAL DAILY DOSE
     Route: 065
     Dates: start: 20151205
  36. TACROLIMUS. [Concomitant]
     Active Substance: TACROLIMUS
     Dosage: TOTAL DAILY DOSE
     Route: 065
     Dates: start: 20151231
  37. CELLCEPT [Suspect]
     Active Substance: MYCOPHENOLATE MOFETIL\MYCOPHENOLATE MOFETIL HYDROCHLORIDE
     Dosage: DAILY DOSE
     Route: 065
     Dates: start: 20140618
  38. TACROLIMUS. [Concomitant]
     Active Substance: TACROLIMUS
     Dosage: TOTAL DAILY DOSE
     Route: 065
     Dates: start: 20151003
  39. TACROLIMUS. [Concomitant]
     Active Substance: TACROLIMUS
     Dosage: TOTAL DAILY DOSE
     Route: 065
     Dates: start: 20151220
  40. TACROLIMUS. [Concomitant]
     Active Substance: TACROLIMUS
     Dosage: TOTAL DAILY DOSE
     Route: 065
     Dates: start: 20151228
  41. TACROLIMUS. [Concomitant]
     Active Substance: TACROLIMUS
     Dosage: TOTAL DAILY DOSE
     Route: 065
     Dates: start: 20160203
  42. TACROLIMUS. [Concomitant]
     Active Substance: TACROLIMUS
     Dosage: TOTAL DAILY DOSE
     Route: 065
     Dates: start: 20160211
  43. TACROLIMUS. [Concomitant]
     Active Substance: TACROLIMUS
     Dosage: TOTAL DAILY DOSE
     Route: 065
     Dates: start: 20160302

REACTIONS (6)
  - Anisocytosis [Not Recovered/Not Resolved]
  - Anaemia [Not Recovered/Not Resolved]
  - Poikilocytosis [Not Recovered/Not Resolved]
  - Erythropoiesis abnormal [Not Recovered/Not Resolved]
  - Splenomegaly [Unknown]
  - Thrombocytopenia [Not Recovered/Not Resolved]

NARRATIVE: CASE EVENT DATE: 20160201
